FAERS Safety Report 4853463-1 (Version None)
Quarter: 2005Q4

REPORT INFORMATION
  Report Type: 
  Country: None (occurrence: None)
  Receive Date: 20051214
  Receipt Date: 20051021
  Transmission Date: 20060501
  Serious: Yes (Death, Hospitalization, Other)
  Sender: FDA-Public Use
  Company Number: PHBS2005NO15604

PATIENT
  Age: 58 Year
  Sex: Female

DRUGS (9)
  1. ZOMETA [Suspect]
     Indication: METASTASES TO BONE
     Dosage: 4 MG EVERY 4 WEEKS
     Dates: start: 20030301, end: 20050514
  2. AREDIA [Suspect]
     Dates: start: 20010709
  3. NEURONTIN [Concomitant]
     Route: 065
     Dates: start: 20050428
  4. ACETAMINOPHEN [Concomitant]
     Route: 065
     Dates: start: 20050428
  5. LANSOPRAZOLE [Concomitant]
     Route: 065
     Dates: start: 20050428
  6. LACTULOSE [Concomitant]
     Route: 065
     Dates: start: 20050428
  7. SAROTEX [Concomitant]
     Route: 065
     Dates: start: 20050428
  8. DOLCONTIN [Concomitant]
     Route: 065
     Dates: start: 20050428
  9. MORPHINE [Concomitant]
     Route: 065
     Dates: start: 20050428

REACTIONS (7)
  - BONE DISORDER [None]
  - BONE PAIN [None]
  - IMPAIRED HEALING [None]
  - INFECTION [None]
  - MALIGNANT NEOPLASM PROGRESSION [None]
  - OSTEONECROSIS [None]
  - TOOTH EXTRACTION [None]
